FAERS Safety Report 7765520-0 (Version None)
Quarter: 2011Q3

REPORT INFORMATION
  Report Type: 
  Country: None (occurrence: None)
  Receive Date: 20110906
  Receipt Date: 20110525
  Transmission Date: 20111222
  Serious: No
  Sender: FDA-Public Use
  Company Number: 201104015

PATIENT
  Age: 63 Year
  Sex: Female
  Weight: 70.3075 kg

DRUGS (7)
  1. CELESTONE [Suspect]
     Dates: start: 20100929, end: 20100929
  2. LISINOPRIL [Concomitant]
  3. LIDOCAINE [Suspect]
     Dosage: INJECTION
     Dates: start: 20100929, end: 20100929
  4. XIAFLEX [Suspect]
     Indication: DUPUYTREN'S CONTRACTURE
     Dosage: 1 IN 1 D, INTRALESIONAL INJECTION
     Route: 026
     Dates: start: 20100928, end: 20100928
  5. SINGULAIR [Concomitant]
  6. NEXIUM (ESOMPRAZOLE MAGNESIUM) [Concomitant]
  7. AEROBID INHALER (FLUNISOLIDE) [Concomitant]

REACTIONS (5)
  - LYMPHADENOPATHY [None]
  - PAIN IN EXTREMITY [None]
  - MUSCULOSKELETAL STIFFNESS [None]
  - ARTHRALGIA [None]
  - CONTUSION [None]
